FAERS Safety Report 11319339 (Version 1)
Quarter: 2015Q3

REPORT INFORMATION
  Report Type: Spontaneous
  Country: FR (occurrence: FR)
  Receive Date: 20150729
  Receipt Date: 20150729
  Transmission Date: 20151125
  Serious: Yes (Hospitalization, Other)
  Sender: FDA-Public Use
  Company Number: FR-PFIZER INC-2015247488

PATIENT
  Age: 85 Year
  Sex: Female

DRUGS (6)
  1. TENORDATE [Suspect]
     Active Substance: ATENOLOL\NIFEDIPINE
     Indication: ESSENTIAL HYPERTENSION
     Dosage: 1 DF, EVERY HOUR
     Route: 048
  2. PREVISCAN [Suspect]
     Active Substance: FLUINDIONE
     Dosage: 0.75 DF, DAILY
     Route: 048
  3. FUROSEMIDE. [Suspect]
     Active Substance: FUROSEMIDE
     Indication: ESSENTIAL HYPERTENSION
     Dosage: 40 MG, DAILY
     Route: 048
  4. OFLOCET [Suspect]
     Active Substance: OFLOXACIN
     Dosage: 200 MG, 2X/DAY
     Route: 048
  5. DIFFU K [Concomitant]
     Active Substance: POTASSIUM CHLORIDE
     Dosage: UNK
  6. AMIODARONE HCL [Suspect]
     Active Substance: AMIODARONE HYDROCHLORIDE
     Indication: ATRIAL FIBRILLATION
     Dosage: 200 MG, ALTERNATE DAY
     Route: 048

REACTIONS (3)
  - Hallucination, visual [Unknown]
  - Decreased appetite [Unknown]
  - International normalised ratio increased [Recovered/Resolved]

NARRATIVE: CASE EVENT DATE: 20150218
